FAERS Safety Report 7659825-1 (Version None)
Quarter: 2011Q3

REPORT INFORMATION
  Report Type: 
  Country: None (occurrence: None)
  Receive Date: 20110805
  Receipt Date: 20110726
  Transmission Date: 20111222
  Serious: Yes (Hospitalization)
  Sender: FDA-Public Use
  Company Number: US-JNJFOC-20110612155

PATIENT
  Sex: Male
  Weight: 138.35 kg

DRUGS (17)
  1. NEXIUM [Concomitant]
     Route: 048
  2. AMLODIPINE [Concomitant]
  3. NORVASC [Concomitant]
     Route: 048
  4. PERCOCET [Concomitant]
     Indication: PAIN
  5. BACTRIM [Concomitant]
     Route: 048
  6. STELARA [Suspect]
     Route: 058
     Dates: start: 20110322
  7. STELARA [Suspect]
     Route: 058
     Dates: start: 20110420
  8. STELARA [Suspect]
     Indication: PSORIASIS
     Route: 058
  9. PHENERGAN HCL [Concomitant]
     Route: 048
  10. DIFLUCAN [Concomitant]
  11. ATARAX [Concomitant]
     Route: 048
  12. DALTEPARIN SODIUM [Concomitant]
  13. REGLAN [Concomitant]
  14. LEXAPRO [Concomitant]
  15. LISINOPRIL [Concomitant]
  16. ATIVAN [Concomitant]
  17. OXYCONTIN [Concomitant]

REACTIONS (3)
  - STAPHYLOCOCCAL INFECTION [None]
  - PNEUMONIA [None]
  - PSORIASIS [None]
